FAERS Safety Report 5425892-9 (Version None)
Quarter: 2007Q3

REPORT INFORMATION
  Report Type: 
  Country: None (occurrence: None)
  Receive Date: 20070725
  Receipt Date: 20060420
  Transmission Date: 20080115
  Serious: Yes (Death, Other)
  Sender: FDA-Public Use
  Company Number: USA-2006-0024050

PATIENT
  Age: 14 Year
  Sex: Male
  Weight: 81.6 kg

DRUGS (6)
  1. MS CONTIN [Suspect]
     Indication: DRUG ABUSER
     Dosage: 100 MG
  2. OXYCONTIN [Suspect]
     Indication: DRUG ABUSER
     Dosage: 80 MG
  3. MORPHINE SULFATE [Suspect]
     Indication: DRUG ABUSER
     Dosage: 30 MG
  4. OXYMORPHONE (OXYMORPHONE) [Suspect]
     Indication: DRUG ABUSER
  5. CODEINE (CODEINE) [Suspect]
     Indication: DRUG ABUSER
  6. PROMETHAZINE [Suspect]
     Indication: DRUG ABUSER

REACTIONS (4)
  - ACCIDENTAL OVERDOSE [None]
  - AGONAL DEATH STRUGGLE [None]
  - DRUG TOXICITY [None]
  - SUBSTANCE ABUSE [None]
